FAERS Safety Report 7551991-1 (Version None)
Quarter: 2011Q2

REPORT INFORMATION
  Report Type: 
  Country: None (occurrence: None)
  Receive Date: 20110616
  Receipt Date: 20110604
  Transmission Date: 20111010
  Serious: Yes (Other)
  Sender: FDA-Public Use
  Company Number: US-CELGENEUS-163-21880-11061221

PATIENT
  Sex: Male

DRUGS (24)
  1. OXYCODONE HCL [Concomitant]
     Route: 065
  2. NIASPAN [Concomitant]
     Route: 065
  3. LORCET-HD [Concomitant]
     Route: 065
  4. NOVOLIN 70/30 [Concomitant]
     Route: 065
  5. NORVASC [Concomitant]
     Route: 065
  6. RANEXA [Concomitant]
     Route: 065
  7. PROVENTIL [Concomitant]
     Route: 065
  8. DECADRON [Concomitant]
     Route: 065
  9. COUMADIN [Concomitant]
     Route: 065
  10. PROZAC [Concomitant]
     Route: 065
  11. ISOSORBIDE [Concomitant]
     Route: 065
  12. PCN [Concomitant]
     Route: 065
  13. PRILOSEC [Concomitant]
     Route: 065
  14. AGGRENOX [Concomitant]
     Route: 065
  15. REVLIMID [Suspect]
     Indication: MULTIPLE MYELOMA
     Dosage: 25 MILLIGRAM
     Route: 048
     Dates: start: 20091101
  16. REVLIMID [Suspect]
     Dosage: 5 MILLIGRAM
     Route: 048
     Dates: start: 20110101
  17. NASONEX [Concomitant]
     Route: 065
  18. COZAAR [Concomitant]
     Route: 065
  19. ASPIRIN [Concomitant]
     Route: 065
  20. ATENOLOL [Concomitant]
     Route: 065
  21. XANAX [Concomitant]
     Route: 065
  22. METFORMIN HCL [Concomitant]
     Route: 065
  23. NITROGLYCERIN [Concomitant]
     Route: 065
  24. LIPITOR [Concomitant]
     Route: 065

REACTIONS (5)
  - MALAISE [None]
  - FEELING ABNORMAL [None]
  - PAIN IN EXTREMITY [None]
  - HAEMORRHAGE [None]
  - INCREASED TENDENCY TO BRUISE [None]
